FAERS Safety Report 8343690-3 (Version None)
Quarter: 2012Q2

REPORT INFORMATION
  Report Type: 
  Country: None (occurrence: None)
  Receive Date: 20120503
  Receipt Date: 20120501
  Transmission Date: 20120825
  Serious: Yes (Death)
  Sender: FDA-Public Use
  Company Number: 2011SP038406

PATIENT
  Age: 63 Year
  Sex: Male

DRUGS (9)
  1. MIRTAZAPINE [Suspect]
     Indication: DEPRESSION
     Dosage: 15 MG;QD;PO ; 30 MG;QD;PO ; 45 MG;QD;PO ; 60 MG;QD;PO
     Route: 048
     Dates: start: 20100901, end: 20101101
  2. MIRTAZAPINE [Suspect]
     Indication: DEPRESSION
     Dosage: 15 MG;QD;PO ; 30 MG;QD;PO ; 45 MG;QD;PO ; 60 MG;QD;PO
     Route: 048
     Dates: start: 20110101
  3. MIRTAZAPINE [Suspect]
     Indication: DEPRESSION
     Dosage: 15 MG;QD;PO ; 30 MG;QD;PO ; 45 MG;QD;PO ; 60 MG;QD;PO
     Route: 048
     Dates: start: 20090427, end: 20100401
  4. MIRTAZAPINE [Suspect]
     Indication: DEPRESSION
     Dosage: 15 MG;QD;PO ; 30 MG;QD;PO ; 45 MG;QD;PO ; 60 MG;QD;PO
     Route: 048
     Dates: start: 20100501, end: 20100901
  5. MIRTAZAPINE [Suspect]
     Indication: DEPRESSION
     Dosage: 15 MG;QD;PO ; 30 MG;QD;PO ; 45 MG;QD;PO ; 60 MG;QD;PO
     Route: 048
     Dates: start: 20101101, end: 20110101
  6. CHLORPROMAZINE HCL [Concomitant]
  7. VALDOXAN [Concomitant]
  8. SEROQUEL [Concomitant]
  9. INVEGA [Concomitant]

REACTIONS (5)
  - CONDITION AGGRAVATED [None]
  - DEPRESSION [None]
  - COMPLETED SUICIDE [None]
  - DROWNING [None]
  - ANXIETY [None]
